FAERS Safety Report 11626440 (Version 1)
Quarter: 2015Q4

REPORT INFORMATION
  Report Type: Spontaneous
  Country: US (occurrence: US)
  Receive Date: 20151013
  Receipt Date: 20151013
  Transmission Date: 20160304
  Serious: No
  Sender: FDA-Public Use
  Company Number: US-ROCHE-1597036

PATIENT
  Sex: Female

DRUGS (1)
  1. ZELBORAF [Suspect]
     Active Substance: VEMURAFENIB
     Indication: BRAF GENE MUTATION
     Dosage: 2 TABS IN THE MORNING AND 2 TABS IN THE EVENING
     Route: 048
     Dates: start: 201409

REACTIONS (2)
  - Inflammation [Unknown]
  - Arthralgia [Not Recovered/Not Resolved]
